FAERS Safety Report 6212155-7 (Version None)
Quarter: 2009Q2

REPORT INFORMATION
  Report Type: 
  Country: None (occurrence: None)
  Receive Date: 20090602
  Receipt Date: 20090522
  Transmission Date: 20091009
  Serious: Yes (Life-Threatening, Hospitalization)
  Sender: FDA-Public Use
  Company Number: US-WYE-H08745509

PATIENT
  Sex: Male
  Weight: 78.09 kg

DRUGS (4)
  1. PRISTIQ [Suspect]
     Indication: MAJOR DEPRESSION
     Dosage: 50 MG, FREQUENCY UNKNOWN
     Route: 048
     Dates: start: 20090301, end: 20090325
  2. GEODON [Concomitant]
     Dosage: 20 MG, FREQUENCY UNKNOWN
  3. ZOLOFT [Concomitant]
     Dosage: UNKNOWN
  4. ABILIFY [Concomitant]
     Indication: MAJOR DEPRESSION
     Dosage: UNKNOWN
     Route: 048

REACTIONS (2)
  - ASPHYXIA [None]
  - SUICIDE ATTEMPT [None]
